FAERS Safety Report 6321949-9 (Version None)
Quarter: 2009Q3

REPORT INFORMATION
  Report Type: 
  Country: None (occurrence: None)
  Receive Date: 20090824
  Receipt Date: 20090814
  Transmission Date: 20100115
  Serious: Yes (Death, Other)
  Sender: FDA-Public Use
  Company Number: AU-AMGEN-QUU346373

PATIENT
  Sex: Female

DRUGS (5)
  1. NEULASTA [Suspect]
     Indication: CHEMOTHERAPY
     Route: 065
  2. CYCLOPHOSPHAMIDE [Concomitant]
  3. MITOXANTRONE [Concomitant]
  4. VINCRISTINE [Concomitant]
  5. PREDNISONE TAB [Concomitant]

REACTIONS (2)
  - ORGANISING PNEUMONIA [None]
  - PULMONARY FIBROSIS [None]
